FAERS Safety Report 9159548 (Version 1)
Quarter: 2013Q1

REPORT INFORMATION
  Report Type: Spontaneous
  Country: IT (occurrence: None)
  Receive Date: 20130219
  Receipt Date: 20130219
  Transmission Date: 20140127
  Serious: Yes (Hospitalization, Other)
  Sender: FDA-Public Use
  Company Number: 2013P1002033

PATIENT
  Age: 39 Year
  Sex: Female

DRUGS (6)
  1. LITHIUM [Suspect]
  2. CLOZAPINE [Suspect]
  3. VALPROIC ACID [Suspect]
  4. PIPAMPERONE [Suspect]
  5. HALOPERIDOL [Suspect]
  6. DIAZEPAM [Concomitant]

REACTIONS (1)
  - Neuroleptic malignant syndrome [None]
